FAERS Safety Report 5526797-5 (Version None)
Quarter: 2007Q4

REPORT INFORMATION
  Report Type: 
  Country: None (occurrence: None)
  Receive Date: 20071127
  Receipt Date: 20071116
  Transmission Date: 20080405
  Serious: Yes (Hospitalization)
  Sender: FDA-Public Use
  Company Number: US-ROCHE-532000

PATIENT
  Age: 92 Year
  Sex: Female

DRUGS (4)
  1. CELLCEPT [Suspect]
     Indication: AUTOIMMUNE DISORDER
     Route: 048
     Dates: start: 20071001
  2. UNSPECIFIED MEDICATIONS [Concomitant]
     Dosage: THE PATIENT WAS ON UNSPECIFIED CARDIAC MEDICATIONS.
  3. LASIX [Concomitant]
  4. ARICEPT [Concomitant]

REACTIONS (1)
  - BRAIN MASS [None]
